FAERS Safety Report 15418059 (Version 1)
Quarter: 2018Q3

REPORT INFORMATION
  Report Type: Other
  Country: ES (occurrence: ES)
  Receive Date: 20180924
  Receipt Date: 20180924
  Transmission Date: 20181010
  Serious: Yes (Other)
  Sender: FDA-Public Use
  Company Number: ES-SAPTALIS PHARMACEUTICALS LLC-2055256

PATIENT
  Age: 39 Year
  Sex: Male

DRUGS (3)
  1. LORAZEPAM. [Suspect]
     Active Substance: LORAZEPAM
     Indication: PRODUCT USED FOR UNKNOWN INDICATION
     Route: 065
  2. VALPROIC ACID. [Interacting]
     Active Substance: VALPROIC ACID
     Route: 065
  3. QUETIAPINE. [Interacting]
     Active Substance: QUETIAPINE
     Route: 065

REACTIONS (9)
  - Diabetic ketoacidosis [Recovered/Resolved]
  - Hypoxia [Recovered/Resolved]
  - Hyperosmolar state [Recovered/Resolved]
  - Blood cholesterol increased [Recovered/Resolved]
  - Diabetes mellitus [Unknown]
  - Coma [Recovered/Resolved]
  - Hypertriglyceridaemia [Recovered/Resolved]
  - Hypercapnia [Recovered/Resolved]
  - Weight increased [Recovered/Resolved]
